FAERS Safety Report 7740940-9 (Version None)
Quarter: 2011Q3

REPORT INFORMATION
  Report Type: 
  Country: None (occurrence: None)
  Receive Date: 20110909
  Receipt Date: 20110831
  Transmission Date: 20111222
  Serious: Yes (Hospitalization)
  Sender: FDA-Public Use
  Company Number: PHHO2011FR13547

PATIENT
  Sex: Female
  Weight: 60 kg

DRUGS (8)
  1. ESOMEPRAZOLE SODIUM [Concomitant]
     Dosage: UNK
     Route: 048
     Dates: start: 20110802
  2. PREDNISONE [Concomitant]
     Indication: RENAL TRANSPLANT
     Dosage: 15
     Route: 048
     Dates: start: 20110710
  3. VALGANCICLOVIR [Concomitant]
     Dosage: 450 MG, UNK
     Route: 048
     Dates: start: 20110730
  4. ASCORBIC ACID [Concomitant]
     Dosage: UNK
     Route: 048
  5. FERROUS SULFATE TAB [Concomitant]
     Dosage: UNK
     Route: 048
  6. NEORAL [Suspect]
     Indication: RENAL TRANSPLANT
     Dosage: 375
     Route: 048
     Dates: start: 20110715
  7. CELL CEPT [Concomitant]
     Indication: RENAL TRANSPLANT
     Dosage: 1 G, BID
     Route: 048
     Dates: start: 20110710
  8. FUROSEMIDE [Concomitant]
     Dosage: UNK
     Route: 048

REACTIONS (3)
  - LYMPHOCELE [None]
  - RENAL FAILURE ACUTE [None]
  - OVERDOSE [None]
